FAERS Safety Report 10224439 (Version 1)
Quarter: 2014Q1

REPORT INFORMATION
  Report Type: Spontaneous
  Country: US (occurrence: None)
  Receive Date: 20140306
  Receipt Date: 20140306
  Transmission Date: 20141002
  Serious: Yes (Other)
  Sender: FDA-Public Use
  Company Number: 163-21880-13093197

PATIENT
  Age: 16 Year
  Sex: Male
  Weight: 72.6 kg

DRUGS (21)
  1. REVLIMID (LENALIDOMIDE) (5 MILLIGRAM, CAPSULES) [Suspect]
     Indication: SYSTEMIC LUPUS ERYTHEMATOSUS
     Route: 048
     Dates: start: 201007
  2. NOVOLOG (INSULIN ASPART) [Concomitant]
  3. AMITRIPTYLINE HCL (AMITRIPTYLINE HYDROCHLORIDE) [Concomitant]
  4. FOLIC ACID (FOLIC ACID) [Concomitant]
  5. BACTRIM DS (BACTRIM) [Concomitant]
  6. HYDROCHLOROTHIAZIDE (HYDROCHLOROTHIAZIDE) [Concomitant]
  7. HYOSCYAMINE SULFATE ER (HYOSCYAMINE SULFATE) [Concomitant]
  8. CALCIUM (CALCIUM) [Concomitant]
  9. BABY ASPIRIN (ACETYLSALICYLIC ACID) [Concomitant]
  10. NEXIUM (ESOMEPRAZOLE) [Concomitant]
  11. PREDNISONE (PREDNISONE) [Concomitant]
  12. SINGULAIR (MONTELUKAST) [Concomitant]
  13. AMLODIPINE BESYLATE (AMLODIPINE BESILATE) [Concomitant]
  14. DOXAZOSIN MESYLATE (DOXAZOSIN MESILATE) [Concomitant]
  15. OMEPRAZOLE (OMEPRAZOLE) [Concomitant]
  16. CLONIDINE HCL (CLONIDINE HYDROCHLORIDE) [Concomitant]
  17. MYCOPHENOLATE MOFETIL (MYCOPHENOLATE MOFETIL) [Concomitant]
  18. NORVASC (AMLODIPINE BESILATE) [Concomitant]
  19. RANITIDINE HCL (RANITIDINE HYDROCHLORIDE) [Concomitant]
  20. CELLCEPT (MYCOPHENOLATE MOFETIL) [Concomitant]
  21. DIOVAN (VALSARTAN) [Concomitant]

REACTIONS (1)
  - Pulmonary embolism [None]
